FAERS Safety Report 14586234 (Version 1)
Quarter: 2018Q1

REPORT INFORMATION
  Report Type: Spontaneous
  Country: US (occurrence: US)
  Receive Date: 20180301
  Receipt Date: 20180301
  Transmission Date: 20180509
  Serious: Yes (Other)
  Sender: FDA-Public Use
  Company Number: US-MYLANLABS-V-DE-2007-0458

PATIENT
  Age: 4 Year
  Sex: Male

DRUGS (3)
  1. FENTANYL. [Suspect]
     Active Substance: FENTANYL
     Indication: SEDATION
     Dosage: 8 ?G/KG PER HOUR (CUMULATIVE DOSE: 130 ?G/KG)
     Route: 042
  2. MIDAZOLAM [Suspect]
     Active Substance: MIDAZOLAM HYDROCHLORIDE
     Indication: SEDATION
     Dosage: 0.5 MG/KG PER HOUR (CUMULATIVE DOSE: 26 MG/KG)
     Route: 042
  3. MORPHINE [Suspect]
     Active Substance: MORPHINE
     Indication: SEDATION
     Dosage: 0.8 MG/KG PER HOUR (CUMULATIVE DOSE: 18 MG/KG)
     Route: 042

REACTIONS (6)
  - Agitation [Recovered/Resolved]
  - Insomnia [Recovered/Resolved]
  - Hallucination, visual [Recovered/Resolved]
  - Drug withdrawal syndrome [Recovered/Resolved]
  - Dyskinesia [Recovered/Resolved]
  - Stereotypy [Recovered/Resolved]
